FAERS Safety Report 24587933 (Version 2)
Quarter: 2024Q4

REPORT INFORMATION
  Report Type: Spontaneous
  Country: US (occurrence: US)
  Receive Date: 20241107
  Receipt Date: 20241125
  Transmission Date: 20250114
  Serious: Yes (Other)
  Sender: COOPERSURGICAL
  Company Number: US-COOPERSURGICAL, INC.-2024CPS003141

PATIENT
  Age: 30 Year
  Sex: Female
  Weight: 63.492 kg

DRUGS (7)
  1. PARAGARD T 380A [Suspect]
     Active Substance: COPPER
     Indication: Contraception
     Dosage: UNK
     Route: 015
     Dates: start: 20240823, end: 20241107
  2. FERROUS SULFATE [Concomitant]
     Active Substance: FERROUS SULFATE
     Dosage: 1 TABLET (325 MG), 3X/DAY
     Route: 048
     Dates: end: 20241014
  3. VITAFOL ULTRA [Concomitant]
     Active Substance: .ALPHA.-TOCOPHEROL ACETATE, DL-\.BETA.-CAROTENE\ASCORBIC ACID\CHOLECALCIFEROL\CUPRIC OXIDE\CYANOCOBA
     Dosage: 1 CAPSULE, 1X/DAY
     Route: 048
     Dates: end: 20241014
  4. ONDANSETRON [Concomitant]
     Active Substance: ONDANSETRON
     Dosage: 1 TABLET (4 MG), EVERY 6 HOURS, AS NEEDED
     Route: 048
     Dates: end: 20241014
  5. NUVESSA [Concomitant]
     Active Substance: METRONIDAZOLE
     Dosage: 1 APPLICATORFUL (SINGLE DOSE)
     Route: 067
     Dates: end: 20241014
  6. PANTOPRAZOLE [Concomitant]
     Active Substance: PANTOPRAZOLE
     Dosage: 1 DELAYED-RELEASE TABLET (20 MG), 1X/DAY, AS NEEDED
     Route: 048
     Dates: end: 20241014
  7. DIFLUCAN [Concomitant]
     Active Substance: FLUCONAZOLE
     Dosage: 1 TABLET (150 MG), THEN REPEAT DOSE IN 72 HOURS
     Route: 048
     Dates: end: 20241014

REACTIONS (3)
  - Polycystic ovaries [Not Recovered/Not Resolved]
  - Embedded device [Recovered/Resolved]
  - Device dislocation [Recovered/Resolved]

NARRATIVE: CASE EVENT DATE: 20241014
